FAERS Safety Report 24935800 (Version 1)
Quarter: 2025Q1

REPORT INFORMATION
  Report Type: Spontaneous
  Country: JP (occurrence: JP)
  Receive Date: 20250206
  Receipt Date: 20250206
  Transmission Date: 20250409
  Serious: Yes (Other)
  Sender: EXELIXIS
  Company Number: JP-EXELIXIS-CABO-24081141

PATIENT
  Age: 56 Year
  Sex: Male

DRUGS (1)
  1. CABOMETYX [Suspect]
     Active Substance: CABOZANTINIB S-MALATE
     Indication: Hereditary leiomyomatosis renal cell carcinoma
     Dosage: 40 MG, QD

REACTIONS (2)
  - Malignant neoplasm progression [Unknown]
  - Therapy partial responder [Unknown]
